FAERS Safety Report 4442521-1 (Version None)
Quarter: 2004Q3

REPORT INFORMATION
  Report Type: 
  Country: None (occurrence: None)
  Receive Date: 20040903
  Receipt Date: 20040712
  Transmission Date: 20050211
  Serious: Yes (Other)
  Sender: FDA-Public Use
  Company Number: 2004UW14336

PATIENT
  Age: 56 Year
  Sex: Female
  Weight: 95.2554 kg

DRUGS (4)
  1. CRESTOR [Suspect]
     Indication: BLOOD CHOLESTEROL INCREASED
     Dosage: 20 MG QD PO
     Route: 048
  2. CRESTOR [Suspect]
     Indication: BLOOD CHOLESTEROL INCREASED
     Dosage: 10 MG QD PO
     Route: 048
  3. RANITIDINE [Concomitant]
  4. ASPIRIN [Concomitant]

REACTIONS (5)
  - CHEST PAIN [None]
  - CONSTIPATION [None]
  - HAEMATOCHEZIA [None]
  - MYALGIA [None]
  - PAIN IN EXTREMITY [None]
